FAERS Safety Report 24555792 (Version 1)
Quarter: 2024Q4

REPORT INFORMATION
  Report Type: Report from Study
  Country: US (occurrence: US)
  Receive Date: 20241028
  Receipt Date: 20241028
  Transmission Date: 20250115
  Serious: No
  Sender: BIOGEN
  Company Number: US-BIOGEN-2024BI01287208

PATIENT
  Sex: Female

DRUGS (1)
  1. ZURZUVAE [Suspect]
     Active Substance: ZURANOLONE
     Indication: Perinatal depression
     Route: 050
     Dates: start: 20241008

REACTIONS (5)
  - Clumsiness [Unknown]
  - Mental impairment [Unknown]
  - Yawning [Unknown]
  - Dissociation [Unknown]
  - Memory impairment [Unknown]
